FAERS Safety Report 12653196 (Version 3)
Quarter: 2016Q3

REPORT INFORMATION
  Report Type: Spontaneous
  Country: US (occurrence: US)
  Receive Date: 20160815
  Receipt Date: 20160928
  Transmission Date: 20161109
  Serious: Yes (Other)
  Sender: FDA-Public Use
  Company Number: US-SAOL THERAPEUTICS-2016SAO00388

PATIENT
  Age: 65 Year
  Sex: Female

DRUGS (2)
  1. BACLOFEN. [Suspect]
     Active Substance: BACLOFEN
     Indication: MUSCLE SPASTICITY
     Dosage: 606.8 ?G, \DAY
     Route: 037
  2. FENTANYL. [Suspect]
     Active Substance: FENTANYL
     Dosage: 75.85 ?G, \DAY
     Route: 037

REACTIONS (6)
  - Anxiety [Unknown]
  - Overdose [Unknown]
  - Dizziness [Unknown]
  - Hyperhidrosis [Unknown]
  - Cerebrovascular accident [Unknown]
  - Respiratory depression [Unknown]

NARRATIVE: CASE EVENT DATE: 20160729
